FAERS Safety Report 9347790 (Version 2)
Quarter: 2013Q3

REPORT INFORMATION
  Report Type: Spontaneous
  Country: US (occurrence: US)
  Receive Date: 20130614
  Receipt Date: 20130717
  Transmission Date: 20140515
  Serious: No
  Sender: FDA-Public Use
  Company Number: US-PFIZER INC-2013176455

PATIENT
  Age: 54 Year
  Sex: Female
  Weight: 50.8 kg

DRUGS (1)
  1. PREMARIN [Suspect]
     Indication: VULVOVAGINAL DRYNESS
     Dosage: UNK (TILL ONE MARK ON APPLICATOR), 2X/WEEK
     Route: 067
     Dates: start: 201305, end: 2013

REACTIONS (4)
  - Hypersensitivity [Recovered/Resolved]
  - Vaginal inflammation [Recovered/Resolved]
  - Vulvovaginal pruritus [Recovered/Resolved]
  - Vulvovaginal pain [Recovered/Resolved]
